FAERS Safety Report 17143297 (Version 1)
Quarter: 2019Q4

REPORT INFORMATION
  Report Type: Spontaneous
  Country: FR (occurrence: FR)
  Receive Date: 20191211
  Receipt Date: 20191211
  Transmission Date: 20200122
  Serious: Yes (Other)
  Sender: FDA-Public Use
  Company Number: FR-AMERICAN REGENT INC-20190184

PATIENT
  Age: 85 Year
  Sex: Male
  Weight: 86.5 kg

DRUGS (2)
  1. VENOFER [Suspect]
     Active Substance: IRON SUCROSE
     Dosage: 100 MG/ 5 ML (1 DOASAGE FORMS)
     Route: 042
     Dates: start: 20190103, end: 20190103
  2. VENOFER [Suspect]
     Active Substance: IRON SUCROSE
     Indication: ANAEMIA
     Dosage: 100 MG/5 ML (1 DOSAGE FORM) 1 DAYS
     Route: 042
     Dates: start: 20181220, end: 20181220

REACTIONS (3)
  - Feeling hot [Recovered/Resolved]
  - Malaise [Recovered/Resolved]
  - Loss of consciousness [Recovered/Resolved]

NARRATIVE: CASE EVENT DATE: 20181220
